FAERS Safety Report 19001080 (Version 3)
Quarter: 2021Q2

REPORT INFORMATION
  Report Type: Spontaneous
  Country: IT (occurrence: IT)
  Receive Date: 20210312
  Receipt Date: 20210518
  Transmission Date: 20210717
  Serious: Yes (Death, Other)
  Sender: FDA-Public Use
  Company Number: NVSC2021IT056245

PATIENT
  Age: 82 Year
  Sex: Male

DRUGS (3)
  1. DABIGATRAN [Interacting]
     Active Substance: DABIGATRAN
     Indication: ANTICOAGULANT THERAPY
     Dosage: 220 MG, QD (110 MILLIGRAM, 2X/DAY (BID))
     Route: 048
  2. LEVETIRACETAM. [Suspect]
     Active Substance: LEVETIRACETAM
     Indication: EPILEPSY
     Dosage: 500 MG, QD (250 MILLIGRAM, 2X/DAY (BID))
     Route: 065
  3. DABIGATRAN [Interacting]
     Active Substance: DABIGATRAN
     Indication: ATRIAL FIBRILLATION

REACTIONS (2)
  - Drug interaction [Unknown]
  - Ischaemic stroke [Fatal]
